FAERS Safety Report 7978798-5 (Version None)
Quarter: 2011Q4

REPORT INFORMATION
  Report Type: 
  Country: None (occurrence: None)
  Receive Date: 20111214
  Receipt Date: 20111209
  Transmission Date: 20120403
  Serious: No
  Sender: FDA-Public Use
  Company Number: US-BAYER-2011-119520

PATIENT
  Age: 77 Year
  Sex: Female
  Weight: 58 kg

DRUGS (4)
  1. SYNTHROID [Concomitant]
  2. ESTROGENIC SUBSTANCE [Concomitant]
  3. ASPIRIN [Concomitant]
  4. ALEVE (CAPLET) [Suspect]
     Indication: OSTEOARTHRITIS
     Dosage: 2 DF, QD
     Route: 048
     Dates: start: 20091001, end: 20110301

REACTIONS (2)
  - PRURITUS [None]
  - RASH PAPULAR [None]
